FAERS Safety Report 9463950 (Version 2)
Quarter: 2013Q3

REPORT INFORMATION
  Report Type: Spontaneous
  Country: JP (occurrence: JP)
  Receive Date: 20130819
  Receipt Date: 20130903
  Transmission Date: 20140515
  Serious: Yes (Other)
  Sender: FDA-Public Use
  Company Number: JP-GE HEALTHCARE MEDICAL DIAGNOSTICS-OMPQ-PR-1308S-1014

PATIENT
  Age: 66 Year
  Sex: Female

DRUGS (15)
  1. OMNIPAQUE [Suspect]
     Indication: ILEUS
     Route: 042
     Dates: start: 20130808, end: 20130808
  2. OMNIPAQUE [Suspect]
     Indication: DIAGNOSTIC PROCEDURE
  3. TS-1 [Concomitant]
     Indication: GASTRIC CANCER
     Route: 048
     Dates: start: 20130726, end: 20130808
  4. TS-1 [Concomitant]
     Indication: MALIGNANT ASCITES
  5. TS-1 [Concomitant]
     Indication: LUNG NEOPLASM
  6. MUCOSTA [Concomitant]
     Indication: GASTRIC HAEMORRHAGE
     Route: 048
     Dates: start: 20130626
  7. FERO-GRADUMET [Concomitant]
     Indication: HAEMORRHAGIC ANAEMIA
     Route: 048
     Dates: start: 20130626
  8. LOXONIN [Concomitant]
     Indication: CANCER PAIN
     Route: 048
     Dates: start: 20130803, end: 20130809
  9. DUROTEP MT [Concomitant]
     Indication: CANCER PAIN
     Route: 062
     Dates: start: 20130808, end: 20130810
  10. SOLITA-T3 [Concomitant]
     Indication: ILEUS
     Route: 042
     Dates: start: 20130807
  11. SOLITA-T3 [Concomitant]
     Indication: EATING DISORDER
  12. CEFMETAZON [Concomitant]
     Indication: ILEUS
     Route: 042
     Dates: start: 20130807, end: 20130819
  13. ISOTONIC SODIUM CHLORIDE SOLUTION KIT [Concomitant]
     Indication: ILEUS
     Route: 042
     Dates: start: 20130807, end: 20130819
  14. ISOTONIC SODIUM CHLORIDE SOLUTION KIT [Concomitant]
     Indication: CANCER PAIN
     Route: 042
     Dates: start: 20130807, end: 20130808
  15. ROPION [Concomitant]
     Indication: CANCER PAIN
     Route: 042
     Dates: start: 20130807, end: 20130808

REACTIONS (1)
  - Convulsion [Recovered/Resolved]
